FAERS Safety Report 6201753-2 (Version None)
Quarter: 2009Q2

REPORT INFORMATION
  Report Type: 
  Country: None (occurrence: None)
  Receive Date: 20090526
  Receipt Date: 20090520
  Transmission Date: 20091009
  Serious: Yes (Hospitalization, Other)
  Sender: FDA-Public Use
  Company Number: TR-ABBOTT-09P-161-0574779-00

PATIENT
  Age: 39 Year
  Sex: Male

DRUGS (2)
  1. DEPAKENE [Suspect]
     Indication: EPILEPSY
     Route: 048
     Dates: end: 20090401
  2. DEPAKENE [Suspect]
     Dates: start: 20090401

REACTIONS (6)
  - DRUG INEFFECTIVE [None]
  - EPILEPSY [None]
  - LOSS OF CONSCIOUSNESS [None]
  - PRODUCT QUALITY ISSUE [None]
  - SKIN ODOUR ABNORMAL [None]
  - UPPER LIMB FRACTURE [None]
